FAERS Safety Report 24862331 (Version 2)
Quarter: 2025Q1

REPORT INFORMATION
  Report Type: Spontaneous
  Country: US (occurrence: US)
  Receive Date: 20250120
  Receipt Date: 20250217
  Transmission Date: 20250409
  Serious: No
  Sender: PFIZER
  Company Number: US-PFIZER INC-202500009776

PATIENT
  Age: 35 Year
  Sex: Female
  Weight: 58.3 kg

DRUGS (3)
  1. TUKYSA [Suspect]
     Active Substance: TUCATINIB
     Indication: Breast cancer metastatic
     Dosage: TWICE DAILY, AFTER MEALS (HER2 CLIMB REGIMEN)
     Dates: start: 20230227, end: 20250109
  2. TRASTUZUMAB [Concomitant]
     Active Substance: TRASTUZUMAB
  3. CAPECITABINE [Concomitant]
     Active Substance: CAPECITABINE

REACTIONS (2)
  - Anaemia [Unknown]
  - Maternal exposure during pregnancy [Unknown]
